FAERS Safety Report 9251594 (Version 1)
Quarter: 2013Q1

REPORT INFORMATION
  Report Type: Spontaneous
  Country: US (occurrence: None)
  Receive Date: 20130305
  Receipt Date: 20130305
  Transmission Date: 20140127
  Serious: Yes (Other)
  Sender: FDA-Public Use
  Company Number: 163-21880-12090424

PATIENT
  Age: 62 Year
  Sex: Male

DRUGS (18)
  1. REVLIMID [Suspect]
     Indication: PLASMA CELL MYELOMA
     Route: 048
     Dates: start: 201205
  2. PROMETHAZINE(PROMETHAZINE) [Concomitant]
  3. OXYCODONE(OXYCODONE) [Concomitant]
  4. COSOPT(COSOPT) [Concomitant]
  5. VITAMIN B-12(CYANOOOBALAMIN) [Concomitant]
  6. XALATAN(LATANOPROST) [Concomitant]
  7. CALCIUM PLUS VITAMIN D(CALCIUM D3 ^STADA^) [Concomitant]
  8. ASPIRIN(ACETYLSALICYLIC ACID) [Concomitant]
  9. LOMOTIL(LOMOTIL) [Concomitant]
  10. FOLTX(TRIOBE) [Concomitant]
  11. NEURONTIN(GABAPENTIN) [Concomitant]
  12. LASIX(FUROSEMIDE) [Concomitant]
  13. DEXAMETHASONE SODIUM PHOSPHATE(DEXAMETHASONE SODIUM PHOSPHATE) [Concomitant]
  14. CARFILIZOMIB (CARFILZOMIB) [Concomitant]
  15. SODIUM CHLORIDE (SODIUM CHLORIDE) [Concomitant]
  16. DIPHENHYDRAMINE (DIPHENHYDRAMINE) [Concomitant]
  17. HYDROCORTISONE (HYDROCORTISONE) [Concomitant]
  18. METHYLPREDNISOLONE SODIUM SUCCINATE(METHYLPREDNISOLONE SODIUM SUCCINATE) [Concomitant]

REACTIONS (5)
  - Haemoglobin decreased [None]
  - Burning sensation [None]
  - Swollen tongue [None]
  - Plasma cell myeloma [None]
  - Protein total increased [None]
